FAERS Safety Report 13428866 (Version 1)
Quarter: 2017Q2

REPORT INFORMATION
  Report Type: Spontaneous
  Country: US (occurrence: US)
  Receive Date: 20170411
  Receipt Date: 20170411
  Transmission Date: 20170830
  Serious: Yes (Other)
  Sender: FDA-Public Use
  Company Number: US-009507513-1704USA002293

PATIENT
  Age: 65 Year
  Sex: Female

DRUGS (5)
  1. BELSOMRA [Suspect]
     Active Substance: SUVOREXANT
     Indication: INSOMNIA
     Dosage: 20 MG, ONCE NIGHTLY
     Route: 048
  2. HYDROCODONE [Concomitant]
     Active Substance: HYDROCODONE
  3. HEMP [Concomitant]
     Active Substance: HEMP
  4. PAROXETINE. [Concomitant]
     Active Substance: PAROXETINE
  5. LANTUS [Concomitant]
     Active Substance: INSULIN GLARGINE

REACTIONS (7)
  - Blood iron abnormal [Recovered/Resolved]
  - Fall [Not Recovered/Not Resolved]
  - Weight fluctuation [Not Recovered/Not Resolved]
  - Hypoaesthesia [Not Recovered/Not Resolved]
  - Blood glucose abnormal [Recovered/Resolved]
  - Facial bones fracture [Not Recovered/Not Resolved]
  - Product use issue [Unknown]

NARRATIVE: CASE EVENT DATE: 2016
